FAERS Safety Report 8157574-7 (Version None)
Quarter: 2012Q1

REPORT INFORMATION
  Report Type: 
  Country: None (occurrence: None)
  Receive Date: 20120222
  Receipt Date: 20110916
  Transmission Date: 20120608
  Serious: No
  Sender: FDA-Public Use
  Company Number: US-ASTRAZENECA-2011SE56171

PATIENT
  Age: 84 Year
  Sex: Male

DRUGS (8)
  1. COZAAR [Concomitant]
  2. FUROSEMIDE [Concomitant]
  3. PREVACID [Concomitant]
     Dosage: DAILY
  4. ATENOLOL [Suspect]
     Route: 065
  5. CRESTOR [Suspect]
     Route: 048
  6. PRADAXA [Concomitant]
  7. AMLODIPINE [Concomitant]
  8. SYNTHROID [Concomitant]

REACTIONS (10)
  - CHOLELITHIASIS [None]
  - LIMB DISCOMFORT [None]
  - ATRIAL FIBRILLATION [None]
  - PERIPHERAL ARTERIAL OCCLUSIVE DISEASE [None]
  - HYPOTHYROIDISM [None]
  - HYPERTENSION [None]
  - AORTIC STENOSIS [None]
  - NEUROPATHY PERIPHERAL [None]
  - CORONARY ARTERY DISEASE [None]
  - AORTIC ANEURYSM [None]
